FAERS Safety Report 8307455-0 (Version None)
Quarter: 2012Q2

REPORT INFORMATION
  Report Type: 
  Country: None (occurrence: None)
  Receive Date: 20120424
  Receipt Date: 20100707
  Transmission Date: 20120825
  Serious: Yes (Death)
  Sender: FDA-Public Use
  Company Number: US-TEVA-2010003648

PATIENT

DRUGS (1)
  1. ACTIQ [Suspect]
     Route: 002

REACTIONS (2)
  - DEATH [None]
  - DRUG PRESCRIBING ERROR [None]
